FAERS Safety Report 8935124 (Version 1)
Quarter: 2012Q4

REPORT INFORMATION
  Report Type: 
  Country: US (occurrence: US)
  Receive Date: 20121129
  Receipt Date: 20121129
  Transmission Date: 20130627
  Serious: Yes (Other)
  Sender: FDA-Public Use
  Company Number: US-JNJFOC-20121015202

PATIENT
  Age: 45 Year
  Sex: Male
  Weight: 136.08 kg

DRUGS (13)
  1. XARELTO [Suspect]
     Indication: CEREBROVASCULAR ACCIDENT PROPHYLAXIS
     Route: 048
     Dates: start: 20120829, end: 20121026
  2. XARELTO [Suspect]
     Indication: ATRIAL FIBRILLATION
     Route: 048
     Dates: start: 20120829, end: 20121026
  3. ACTOS [Concomitant]
  4. AMIODARONE [Concomitant]
  5. ASPIRIN [Concomitant]
  6. CARVEDILOL [Concomitant]
  7. DIGOXIN [Concomitant]
  8. DILTIAZEM [Concomitant]
  9. GABAPENTIN [Concomitant]
  10. METFORMIN [Concomitant]
  11. NOVOLIN 70/30 [Concomitant]
  12. VICODIN [Concomitant]
  13. VITAMIN D2 [Concomitant]

REACTIONS (1)
  - Thrombosis [Unknown]
